FAERS Safety Report 26112578 (Version 2)
Quarter: 2025Q4

REPORT INFORMATION
  Report Type: Spontaneous
  Country: US (occurrence: US)
  Receive Date: 20251202
  Receipt Date: 20251204
  Transmission Date: 20260118
  Serious: Yes (Other)
  Sender: PFIZER
  Company Number: US-PFIZER INC-PV202500138565

PATIENT
  Age: 8 Decade
  Sex: Male

DRUGS (2)
  1. SIROLIMUS [Suspect]
     Active Substance: SIROLIMUS
     Indication: Renal transplant
     Dosage: UNK
  2. SIROLIMUS [Suspect]
     Active Substance: SIROLIMUS
     Indication: Immunosuppressant drug therapy

REACTIONS (4)
  - Neurotoxicity [Recovered/Resolved]
  - Encephalopathy [Recovered/Resolved]
  - Psychiatric symptom [Recovered/Resolved]
  - Cognitive disorder [Recovered/Resolved]
